FAERS Safety Report 17867905 (Version 1)
Quarter: 2020Q2

REPORT INFORMATION
  Report Type: Report from Study
  Country: US (occurrence: US)
  Receive Date: 20200606
  Receipt Date: 20200606
  Transmission Date: 20200714
  Serious: Yes (Other)
  Sender: FDA-Public Use
  Company Number: US-AUROBINDO-AUR-APL-2020-026946

PATIENT
  Age: 2 Year
  Sex: Male

DRUGS (2)
  1. ZOLEDRONIC ACID INJECTION [Suspect]
     Active Substance: ZOLEDRONIC ACID
     Indication: OSTEOPOROSIS
     Dosage: 0.05 MILLIGRAM/KILOGRAM EVERY 6 MONTHS
     Route: 042
  2. PAMIDRONIC ACID [Suspect]
     Active Substance: PAMIDRONIC ACID
     Indication: OSTEOPOROSIS
     Dosage: 1.5 MILLIGRAM/KILOGRAM EVERY 3 MONTHS
     Route: 042

REACTIONS (3)
  - Product use issue [Unknown]
  - Pain in extremity [Unknown]
  - Atypical femur fracture [Recovering/Resolving]
